FAERS Safety Report 16132114 (Version 1)
Quarter: 2019Q1

REPORT INFORMATION
  Report Type: Spontaneous
  Country: US (occurrence: US)
  Receive Date: 20190329
  Receipt Date: 20190329
  Transmission Date: 20190418
  Serious: No
  Sender: FDA-Public Use
  Company Number: US-GLAXOSMITHKLINE-US2019052576

PATIENT
  Age: 61 Year
  Sex: Female

DRUGS (1)
  1. NICORETTE [Suspect]
     Active Substance: NICOTINE
     Indication: SMOKING CESSATION THERAPY
     Dosage: 2 MG, UNK, 10 TIMES
     Route: 048

REACTIONS (3)
  - Nicotine dependence [Unknown]
  - Wrong technique in product usage process [Unknown]
  - Off label use [Unknown]
